FAERS Safety Report 9339149 (Version 3)
Quarter: 2013Q3

REPORT INFORMATION
  Report Type: Spontaneous
  Country: JP (occurrence: JP)
  Receive Date: 20130610
  Receipt Date: 20130807
  Transmission Date: 20140515
  Serious: Yes (Death)
  Sender: FDA-Public Use
  Company Number: JP-AMGEN-JPNSP2013040445

PATIENT
  Age: 64 Year
  Sex: Male
  Weight: 78 kg

DRUGS (16)
  1. VECTIBIX [Suspect]
     Indication: COLON CANCER
     Dosage: UNK UNK, Q2WK
     Route: 041
     Dates: start: 201210, end: 201212
  2. VECTIBIX [Suspect]
     Dosage: 450 MG, Q2WK
     Route: 041
     Dates: start: 20130531, end: 20130531
  3. 5-FU /00098801/ [Suspect]
     Indication: COLON CANCER
     Dosage: UNK, Q2WK
     Route: 042
     Dates: start: 20120924, end: 20120924
  4. 5-FU /00098801/ [Suspect]
     Dosage: UNK UNK, Q2WK
     Route: 042
     Dates: start: 201210, end: 201212
  5. 5-FU /00098801/ [Suspect]
     Dosage: UNK UNK, Q2WK
     Route: 042
     Dates: start: 20130208, end: 20130507
  6. 5-FU /00098801/ [Suspect]
     Dosage: 4200 MG, Q2WK
     Route: 041
     Dates: start: 20130531, end: 20130602
  7. ELPLAT [Suspect]
     Indication: COLON CANCER
     Dosage: UNK UNK, Q2WK
     Route: 041
     Dates: start: 20120924, end: 20120924
  8. ELPLAT [Suspect]
     Dosage: UNK UNK, Q2WK
     Route: 041
     Dates: start: 201210, end: 201212
  9. ELPLAT [Suspect]
     Dosage: UNK UNK, Q2WK
     Route: 041
     Dates: start: 20130208, end: 20130507
  10. ELPLAT [Suspect]
     Dosage: 150 MG, Q2WK
     Route: 041
     Dates: start: 20130531, end: 20130531
  11. LEVOFOLINATE [Suspect]
     Indication: COLON CANCER
     Dosage: UNK UNK, Q2WK
     Route: 041
     Dates: start: 20120924, end: 20120924
  12. LEVOFOLINATE [Suspect]
     Dosage: UNK UNK, Q2WK
     Route: 041
     Dates: start: 201210, end: 201212
  13. LEVOFOLINATE [Suspect]
     Dosage: UNK UNK, Q2WK
     Route: 041
     Dates: start: 20130208, end: 20130507
  14. LEVOFOLINATE [Suspect]
     Dosage: 350 UNK, Q2WK
     Route: 041
     Dates: start: 20130531, end: 20130531
  15. ALOXI [Concomitant]
     Dosage: 0.75 MG, Q2WK
     Route: 041
     Dates: start: 20130531, end: 20130531
  16. DEXART [Concomitant]
     Dosage: 13.2 MG, Q2WK
     Route: 041
     Dates: start: 20130531, end: 20130531

REACTIONS (2)
  - Interstitial lung disease [Fatal]
  - Skin disorder [Unknown]
